FAERS Safety Report 9117426 (Version 1)
Quarter: 2013Q1

REPORT INFORMATION
  Report Type: Spontaneous
  Country: US (occurrence: US)
  Receive Date: 20130208
  Receipt Date: 20130208
  Transmission Date: 20140127
  Serious: No
  Sender: FDA-Public Use
  Company Number: US-PFIZER INC-2013049536

PATIENT
  Age: 71 Year
  Sex: Female

DRUGS (3)
  1. AMLODIPINE BESILATE [Suspect]
     Dosage: UNK
     Dates: start: 201201, end: 20130123
  2. LATUDA [Concomitant]
     Dosage: 120 MG, ONCE DAILY
  3. ZETIA [Concomitant]
     Dosage: 10 MG, ONCE DAILY

REACTIONS (2)
  - Gingival hypertrophy [Unknown]
  - Gingival pain [Unknown]
